FAERS Safety Report 6143899-3 (Version None)
Quarter: 2009Q2

REPORT INFORMATION
  Report Type: 
  Country: None (occurrence: None)
  Receive Date: 20090406
  Receipt Date: 20090326
  Transmission Date: 20091009
  Serious: Yes (Other)
  Sender: FDA-Public Use
  Company Number: PHHY2009FR11403

PATIENT
  Sex: Female

DRUGS (3)
  1. NISISCO [Suspect]
     Dosage: 1 TABLET EVERY MORNING
     Route: 048
     Dates: end: 20090209
  2. LYRICA [Interacting]
     Indication: PAIN
     Dosage: 50 MG, BID
     Dates: start: 20090209
  3. ZELITREX [Concomitant]
     Indication: HERPES ZOSTER
     Dosage: UNK
     Dates: start: 20090209, end: 20090213

REACTIONS (3)
  - BLOOD PRESSURE DECREASED [None]
  - CONFUSIONAL STATE [None]
  - DRUG INTERACTION [None]
